FAERS Safety Report 9973796 (Version 2)
Quarter: 2014Q1

REPORT INFORMATION
  Report Type: Spontaneous
  Country: US (occurrence: US)
  Receive Date: 20140306
  Receipt Date: 20140320
  Transmission Date: 20141002
  Serious: No
  Sender: FDA-Public Use
  Company Number: US-009507513-1403USA000782

PATIENT
  Sex: Female
  Weight: 65.76 kg

DRUGS (5)
  1. OXYTROL FOR WOMEN [Suspect]
     Indication: HYPERTONIC BLADDER
     Dosage: UNK UNK, UNKNOWN
     Route: 062
     Dates: start: 20140117, end: 20140216
  2. LISINOPRIL [Concomitant]
     Indication: BLOOD PRESSURE
     Dosage: 10 MG, UNKNOWN
  3. LEVOTHYROXINE SODIUM [Concomitant]
     Indication: THYROID DISORDER
     Dosage: 88 MG, UNKNOWN
  4. OMEPRAZOLE [Concomitant]
     Indication: ULCER
     Dosage: 40 MG, UNKNOWN
  5. TYLENOL [Concomitant]
     Indication: ARTHRITIS
     Dosage: 500 MG, UNKNOWN

REACTIONS (1)
  - Alopecia [Recovering/Resolving]
